FAERS Safety Report 9871951 (Version 1)
Quarter: 2014Q1

REPORT INFORMATION
  Report Type: Spontaneous
  Country: US (occurrence: US)
  Receive Date: 20140205
  Receipt Date: 20140205
  Transmission Date: 20141002
  Serious: No
  Sender: FDA-Public Use
  Company Number: US-ALLERGAN-1305063US

PATIENT
  Age: 45 Year
  Sex: Female

DRUGS (5)
  1. BOTOX COSMETIC [Suspect]
     Indication: SKIN WRINKLING
     Dosage: 2 UNITS, SINGLE
     Route: 030
     Dates: start: 20130405, end: 20130405
  2. BOTOX COSMETIC [Suspect]
     Indication: SKIN WRINKLING
     Dosage: 2 UNITS, SINGLE
     Route: 030
     Dates: start: 20130214, end: 20130214
  3. BOTOX COSMETIC [Suspect]
     Indication: SKIN WRINKLING
     Dosage: 12 UNITS, SINGLE
     Dates: start: 20130214, end: 20130214
  4. BOTOX COSMETIC [Suspect]
     Dosage: 8 UNITS, SINGLE
     Route: 030
     Dates: start: 20130214, end: 20130214
  5. XANAX [Concomitant]
     Indication: PRODUCT USED FOR UNKNOWN INDICATION
     Dosage: UNK
     Route: 048

REACTIONS (7)
  - Erythema [Unknown]
  - Swelling face [Recovered/Resolved]
  - Drug administered at inappropriate site [Unknown]
  - Lip swelling [Unknown]
  - Paraesthesia [Unknown]
  - Injection site erythema [Unknown]
  - Injection site swelling [Unknown]
